FAERS Safety Report 25881968 (Version 2)
Quarter: 2025Q4

REPORT INFORMATION
  Report Type: Spontaneous
  Country: US (occurrence: US)
  Receive Date: 20251005
  Receipt Date: 20251020
  Transmission Date: 20260117
  Serious: No
  Sender: BAUSCH AND LOMB
  Company Number: US-BAUSCHBL-2025BNL029534

PATIENT
  Sex: Female

DRUGS (13)
  1. KETOTIFEN [Suspect]
     Active Substance: KETOTIFEN
     Indication: Mast cell activation syndrome
     Route: 065
  2. CROMOLYN [Suspect]
     Active Substance: CROMOLYN
     Indication: Mast cell activation syndrome
  3. VITAMIN C [Suspect]
     Active Substance: ASCORBIC ACID
     Indication: Mast cell activation syndrome
     Dosage: (CBD +/- THC)
  4. CHOLECALCIFEROL [Suspect]
     Active Substance: CHOLECALCIFEROL
     Indication: Mast cell activation syndrome
  5. ZAFIRLUKAST [Suspect]
     Active Substance: ZAFIRLUKAST
     Indication: Mast cell activation syndrome
  6. UNSPECIFIED INGREDIENT [Suspect]
     Active Substance: UNSPECIFIED INGREDIENT
     Indication: Mast cell activation syndrome
  7. TOFACITINIB [Suspect]
     Active Substance: TOFACITINIB
     Indication: Mast cell activation syndrome
  8. RUXOLITINIB [Suspect]
     Active Substance: RUXOLITINIB
     Indication: Mast cell activation syndrome
  9. HUMAN IMMUNOGLOBULIN G [Suspect]
     Active Substance: HUMAN IMMUNOGLOBULIN G
     Indication: Mast cell activation syndrome
  10. KETOROLAC [Suspect]
     Active Substance: KETOROLAC TROMETHAMINE
     Indication: Mast cell activation syndrome
  11. IMATINIB [Concomitant]
     Active Substance: IMATINIB
     Indication: Mast cell activation syndrome
     Dosage: STABLE LOW DOSING, NO SIGN OF ADDICTION
  12. CELECOXIB [Concomitant]
     Active Substance: CELECOXIB
     Indication: Mast cell activation syndrome
     Dosage: STABLE LOW DOSING, NO SIGN OF ADDICTION
  13. NALTREXONE [Concomitant]
     Active Substance: NALTREXONE
     Indication: Mast cell activation syndrome

REACTIONS (1)
  - Therapy partial responder [Unknown]
